FAERS Safety Report 18795078 (Version 2)
Quarter: 2021Q1

REPORT INFORMATION
  Report Type: Report from Study
  Country: IT (occurrence: IT)
  Receive Date: 20210127
  Receipt Date: 20210224
  Transmission Date: 20210419
  Serious: Yes (Hospitalization)
  Sender: FDA-Public Use
  Company Number: IT-ROCHE-2739989

PATIENT
  Age: 74 Year
  Sex: Female
  Weight: 72 kg

DRUGS (21)
  1. SOLDESAM [Concomitant]
     Active Substance: DEXAMETHASONE
     Dates: start: 20200616, end: 20200616
  2. SOLDESAM [Concomitant]
     Active Substance: DEXAMETHASONE
     Dates: start: 20200819, end: 20200819
  3. FOSTER [Concomitant]
     Active Substance: BECLOMETHASONE\FORMOTEROL
     Indication: CHRONIC OBSTRUCTIVE PULMONARY DISEASE
     Dates: start: 202002
  4. PARACETAMOL [Concomitant]
     Active Substance: ACETAMINOPHEN
     Indication: CHEST PAIN
     Dates: start: 20200822, end: 20200822
  5. MANIDIPINA [Concomitant]
     Indication: HYPERTENSION
     Dates: start: 20200928
  6. ETOPOSIDE. [Suspect]
     Active Substance: ETOPOSIDE
     Indication: SMALL CELL LUNG CANCER EXTENSIVE STAGE
     Dosage: 100 MILLIGRAMS PER SQUARE METER?DATE OF MOST RECENT DOSE OF ETOPOSIDE (170 MG) PRIOR TO AE/SAE ON 20
     Route: 042
     Dates: start: 20200616
  7. SOLDESAM [Concomitant]
     Active Substance: DEXAMETHASONE
     Indication: PROPHYLACTIC CHEMOTHERAPY
     Dates: start: 20200617, end: 20200617
  8. SOLDESAM [Concomitant]
     Active Substance: DEXAMETHASONE
     Dates: start: 20200708, end: 20200708
  9. SOLDESAM [Concomitant]
     Active Substance: DEXAMETHASONE
     Dates: start: 20200818, end: 20200818
  10. SOLDESAM [Concomitant]
     Active Substance: DEXAMETHASONE
     Dates: start: 20201209, end: 20201209
  11. BRUFEN [Concomitant]
     Active Substance: IBUPROFEN
     Indication: BACK PAIN
  12. PARACETAMOL [Concomitant]
     Active Substance: ACETAMINOPHEN
     Dates: start: 202002
  13. QUINAPRIL. [Concomitant]
     Active Substance: QUINAPRIL
     Indication: HYPERTENSION
     Dates: start: 2010, end: 20200701
  14. ATEZOLIZUMAB. [Suspect]
     Active Substance: ATEZOLIZUMAB
     Indication: SMALL CELL LUNG CANCER EXTENSIVE STAGE
     Dosage: DATE OF MOST RECENT DOSE OF ATEZOLIZUMAB PRIOR TO AE/SAE ONSET: 02/DEC/2020 AT 12:15
     Route: 042
     Dates: start: 20200616
  15. CARBOPLATIN. [Suspect]
     Active Substance: CARBOPLATIN
     Indication: SMALL CELL LUNG CANCER EXTENSIVE STAGE
     Dosage: INITIAL TARGET AUC OF 5 MG/ML/MIN?DATE OF MOST RECENT DOSE OF CARBOPLATIN (500 MG) PRIOR TO AE/SAE O
     Route: 042
     Dates: start: 20200616
  16. MANIDIPINA [Concomitant]
     Dates: start: 2010, end: 20200701
  17. DUROGESIC [Concomitant]
     Active Substance: FENTANYL
     Indication: BACK PAIN
     Dates: start: 20201010, end: 20201010
  18. KYTRIL [Concomitant]
     Active Substance: GRANISETRON HYDROCHLORIDE
     Indication: DIARRHOEA
     Dates: start: 20201209, end: 20201209
  19. CLEXANE [Concomitant]
     Active Substance: ENOXAPARIN SODIUM
     Indication: EMBOLISM
     Dates: start: 20200608
  20. SOLDESAM [Concomitant]
     Active Substance: DEXAMETHASONE
     Indication: DIARRHOEA
     Dates: start: 20200618, end: 20200618
  21. QUINAPRIL. [Concomitant]
     Active Substance: QUINAPRIL
     Dates: start: 20200928

REACTIONS (1)
  - Acute kidney injury [Recovered/Resolved]

NARRATIVE: CASE EVENT DATE: 20201218
